FAERS Safety Report 25194419 (Version 1)
Quarter: 2025Q2

REPORT INFORMATION
  Report Type: Spontaneous
  Country: TW (occurrence: TW)
  Receive Date: 20250414
  Receipt Date: 20250414
  Transmission Date: 20250716
  Serious: Yes (Hospitalization, Other)
  Sender: ANI
  Company Number: TW-ANIPHARMA-2025-TW-000008

PATIENT
  Age: 38 Year
  Sex: Male

DRUGS (5)
  1. LITHIUM [Suspect]
     Active Substance: LITHIUM
     Indication: Bipolar disorder
     Route: 048
  2. VALPROIC ACID [Suspect]
     Active Substance: VALPROIC ACID
     Indication: Bipolar disorder
     Route: 048
  3. OLANZAPINE [Concomitant]
     Active Substance: OLANZAPINE
  4. CLONAZEPAM [Concomitant]
     Active Substance: CLONAZEPAM
  5. ZOPICLONE [Concomitant]
     Active Substance: ZOPICLONE

REACTIONS (3)
  - Mania [Unknown]
  - Drug withdrawal syndrome [Unknown]
  - Intentional overdose [Recovered/Resolved]
